FAERS Safety Report 8958365 (Version 1)
Quarter: 2012Q4

REPORT INFORMATION
  Report Type: 
  Country: CA (occurrence: CA)
  Receive Date: 20121210
  Receipt Date: 20121210
  Transmission Date: 20130627
  Serious: Yes (Hospitalization)
  Sender: FDA-Public Use
  Company Number: CA-GLAXOSMITHKLINE-A1003964A

PATIENT
  Age: 60 Year
  Sex: Female

DRUGS (2)
  1. FLOLAN [Suspect]
     Indication: CONNECTIVE TISSUE DISORDER
     Dosage: 12MG Per day
     Route: 042
     Dates: start: 20040930
  2. FLOLAN [Suspect]
     Indication: CONNECTIVE TISSUE DISORDER
     Route: 042

REACTIONS (1)
  - Hip surgery [Not Recovered/Not Resolved]
